FAERS Safety Report 4692913-0 (Version None)
Quarter: 2005Q2

REPORT INFORMATION
  Report Type: 
  Country: None (occurrence: None)
  Receive Date: 20050615
  Receipt Date: 20050602
  Transmission Date: 20051028
  Serious: Yes (Other)
  Sender: FDA-Public Use
  Company Number: 2005085109

PATIENT
  Age: 42 Year
  Sex: Female

DRUGS (2)
  1. TOLTERODINE TARTRATE [Suspect]
     Indication: ILL-DEFINED DISORDER
  2. PAROXETINE HCL [Suspect]
     Indication: ILL-DEFINED DISORDER
     Dosage: 30 MG (30 MG, 1 IN 1 D), ORAL
     Route: 048

REACTIONS (5)
  - DRUG INTERACTION [None]
  - DRUG WITHDRAWAL SYNDROME [None]
  - FEELING ABNORMAL [None]
  - SYNCOPE VASOVAGAL [None]
  - VERTIGO [None]
